FAERS Safety Report 17744874 (Version 3)
Quarter: 2020Q2

REPORT INFORMATION
  Report Type: Spontaneous
  Country: US (occurrence: US)
  Receive Date: 20200505
  Receipt Date: 20200508
  Transmission Date: 20200714
  Serious: No
  Sender: FDA-Public Use
  Company Number: US-PFIZER INC-2020177303

PATIENT
  Age: 73 Year
  Sex: Female
  Weight: 74.84 kg

DRUGS (1)
  1. PHENELZINE SULFATE. [Suspect]
     Active Substance: PHENELZINE SULFATE
     Indication: PANIC ATTACK
     Dosage: UNK, DAILY (TAKES 2 OR 3 TABLETS PER DAY) [15MG 2 TABLETS FOR 2 DAYS THEN 3 TABLETS FOR 1 DAY]
     Dates: start: 1982

REACTIONS (4)
  - Stress [Unknown]
  - Blood potassium decreased [Unknown]
  - Weight increased [Unknown]
  - Drug ineffective [Unknown]
